FAERS Safety Report 20864612 (Version 2)
Quarter: 2022Q2

REPORT INFORMATION
  Report Type: Other
  Country: US (occurrence: None)
  Receive Date: 20220524
  Receipt Date: 20220607
  Transmission Date: 20220720
  Serious: No
  Sender: FDA-Public Use
  Company Number: US-ROCHE-3095042

PATIENT
  Age: 49 Year
  Sex: Male
  Weight: 102.15 kg

DRUGS (8)
  1. OCREVUS [Suspect]
     Active Substance: OCRELIZUMAB
     Indication: Relapsing-remitting multiple sclerosis
     Dosage: DATE OF TREATMENT 10/DEC/2021
     Route: 042
     Dates: start: 201905
  2. ADDERALL [Concomitant]
     Active Substance: AMPHETAMINE ASPARTATE\AMPHETAMINE SULFATE\DEXTROAMPHETAMINE SACCHARATE\DEXTROAMPHETAMINE SULFATE
  3. BUPROPION [Concomitant]
     Active Substance: BUPROPION
  4. VITAMIN C [Concomitant]
     Active Substance: ASCORBIC ACID
  5. MAGNESIUM [Concomitant]
     Active Substance: MAGNESIUM
  6. VIAGRA [Concomitant]
     Active Substance: SILDENAFIL CITRATE
  7. REBIF [Concomitant]
     Active Substance: INTERFERON BETA-1A
  8. TYSABRI [Concomitant]
     Active Substance: NATALIZUMAB

REACTIONS (4)
  - COVID-19 [Recovering/Resolving]
  - Antibody test abnormal [Unknown]
  - Peroneal nerve palsy [Unknown]
  - Off label use [Unknown]

NARRATIVE: CASE EVENT DATE: 20220503
